FAERS Safety Report 8798835 (Version 4)
Quarter: 2012Q4

REPORT INFORMATION
  Report Type: 
  Country: US (occurrence: US)
  Receive Date: 20120920
  Receipt Date: 20121019
  Transmission Date: 20130627
  Serious: Yes (Death, Hospitalization)
  Sender: FDA-Public Use
  Company Number: US-GLAXOSMITHKLINE-A0993912A

PATIENT
  Age: 69 Year
  Sex: Male

DRUGS (2)
  1. VOTRIENT [Suspect]
     Indication: RENAL CANCER
     Dosage: 800MG Per day
     Route: 048
  2. FUROSEMIDE [Concomitant]

REACTIONS (7)
  - Death [Fatal]
  - Pneumonia [Unknown]
  - Hospitalisation [Unknown]
  - Rectal haemorrhage [Unknown]
  - Intestinal resection [Unknown]
  - Oedema peripheral [Unknown]
  - Gastrointestinal disorder [Unknown]
